APPROVED DRUG PRODUCT: DORZOLAMIDE HYDROCHLORIDE AND TIMOLOL MALEATE
Active Ingredient: DORZOLAMIDE HYDROCHLORIDE; TIMOLOL MALEATE
Strength: EQ 2% BASE;EQ 0.5% BASE
Dosage Form/Route: SOLUTION/DROPS;OPHTHALMIC
Application: A201998 | Product #001
Applicant: CHARTWELL MOLECULAR HOLDINGS LLC
Approved: Dec 17, 2014 | RLD: No | RS: No | Type: DISCN